FAERS Safety Report 23050448 (Version 8)
Quarter: 2025Q4

REPORT INFORMATION
  Report Type: Spontaneous
  Country: US (occurrence: US)
  Receive Date: 20231010
  Receipt Date: 20251110
  Transmission Date: 20260118
  Serious: Yes (Hospitalization, Other)
  Sender: PFIZER
  Company Number: US-PFIZER INC-PV202300167410

PATIENT
  Age: 72 Year
  Sex: Female

DRUGS (2)
  1. XELJANZ XR [Suspect]
     Active Substance: TOFACITINIB CITRATE
     Indication: Psoriatic arthropathy
     Dosage: 11 MG, DAILY
     Route: 048
  2. XELJANZ XR [Suspect]
     Active Substance: TOFACITINIB CITRATE
     Indication: Psoriasis

REACTIONS (15)
  - Spinal operation [Unknown]
  - Loss of consciousness [Unknown]
  - Hypertension [Unknown]
  - Illness [Unknown]
  - Sinusitis [Unknown]
  - COVID-19 [Not Recovered/Not Resolved]
  - Infection [Unknown]
  - Insomnia [Unknown]
  - Mental disorder [Unknown]
  - Condition aggravated [Unknown]
  - Fatigue [Recovering/Resolving]
  - Swelling [Unknown]
  - Memory impairment [Unknown]
  - Confusional state [Unknown]
  - Blood pressure abnormal [Unknown]

NARRATIVE: CASE EVENT DATE: 20221001
